FAERS Safety Report 6589820-5 (Version None)
Quarter: 2010Q1

REPORT INFORMATION
  Report Type: 
  Country: None (occurrence: None)
  Receive Date: 20100219
  Receipt Date: 20100203
  Transmission Date: 20100710
  Serious: No
  Sender: FDA-Public Use
  Company Number: US-JNJFOC-20100202519

PATIENT
  Sex: Female
  Weight: 56.7 kg

DRUGS (2)
  1. FENTANYL CITRATE [Suspect]
     Indication: PAIN
     Route: 062
  2. UNKNOWN MEDICATION [Concomitant]

REACTIONS (2)
  - DRUG ADMINISTERED AT INAPPROPRIATE SITE [None]
  - WRONG TECHNIQUE IN DRUG USAGE PROCESS [None]
